FAERS Safety Report 24756641 (Version 1)
Quarter: 2024Q4

REPORT INFORMATION
  Report Type: Spontaneous
  Country: GB (occurrence: GB)
  Receive Date: 20241220
  Receipt Date: 20241220
  Transmission Date: 20250115
  Serious: Yes (Other)
  Sender: TEVA
  Company Number: GB-MHRA-TPP19167278C4477759YC1733845377169

PATIENT
  Age: 69 Year
  Sex: Male
  Weight: 80 kg

DRUGS (27)
  1. RAMIPRIL [Suspect]
     Active Substance: RAMIPRIL
     Indication: Adverse drug reaction
     Dosage: DURATION: 1 DAYS
     Route: 048
     Dates: start: 20241118, end: 20241118
  2. ATORVASTATIN [Concomitant]
     Active Substance: ATORVASTATIN
     Indication: Ill-defined disorder
     Dosage: TAKE ONE DAILY
     Dates: start: 20240821
  3. COCODAMOL [Concomitant]
     Active Substance: ACETAMINOPHEN\CODEINE PHOSPHATE
     Indication: Ill-defined disorder
     Dosage: TAKE 1 OR 2 4 TIMES/DAY WHEN REQUIRED
     Dates: start: 20241205
  4. CEPHALEXIN [Concomitant]
     Active Substance: CEPHALEXIN
     Indication: Ill-defined disorder
     Dosage: TIME INTERVAL: 0.33333333 DAYS: TAKE ONE 3 TIMES/DAY, 3 DOSAGE FORMS DAILY, DURATION: 8 DAYS
     Dates: start: 20241120, end: 20241127
  5. LOPERAMIDE [Concomitant]
     Active Substance: LOPERAMIDE
     Indication: Ill-defined disorder
     Dosage: AS DIRECTED
     Dates: start: 20240509
  6. EMPAGLIFLOZIN [Concomitant]
     Active Substance: EMPAGLIFLOZIN
     Indication: Ill-defined disorder
     Dosage: TAKE ONE DAILY, DURATION: 146 DAYS
     Dates: start: 20240509, end: 20241001
  7. IVABRADINE [Concomitant]
     Active Substance: IVABRADINE
     Indication: Ill-defined disorder
     Dosage: TAKE ONE TWICE DAILY, 2 DOSAGE FORMS DAILY
     Dates: start: 20240509
  8. PREDNISOLONE [Concomitant]
     Active Substance: PREDNISOLONE
     Indication: Ill-defined disorder
     Dosage: TAKE 8 TABLETS EACH DAY FOR 5 DAYS, DURATION: 6 DAYS
     Dates: start: 20241030, end: 20241104
  9. CARBOCYSTEINE [Concomitant]
     Active Substance: CARBOCYSTEINE
     Indication: Ill-defined disorder
     Dosage: TIME INTERVAL: 0.33333333 DAYS: TWO TO BE TAKEN THREE TIMES DAILY, 6 DOSAGE FORMS DAILY
     Dates: start: 20240509
  10. RANOLAZINE [Concomitant]
     Active Substance: RANOLAZINE
     Indication: Ill-defined disorder
     Dosage: TAKE ONE TWICE DAILY, 2 DOSAGE FORMS DAILY
     Dates: start: 20240509
  11. POLYETHYLENE GLYCOL 3350\POTASSIUM CHLORIDE\SODIUM BICARBONATE\SODIUM [Concomitant]
     Active Substance: POLYETHYLENE GLYCOL 3350\POTASSIUM CHLORIDE\SODIUM BICARBONATE\SODIUM CHLORIDE
     Indication: Ill-defined disorder
     Dosage: TWO TO BE TAKEN EACH NIGHT, 2 DOSAGE FORMS DAILY
     Dates: start: 20240509
  12. ASPIRIN [Concomitant]
     Active Substance: ASPIRIN
     Indication: Ill-defined disorder
     Dosage: ONE TO BE TAKEN DAILY, 1 DOSAGE FORMS DAILY
     Dates: start: 20240509
  13. AMLODIPINE [Concomitant]
     Active Substance: AMLODIPINE BESYLATE
     Indication: Ill-defined disorder
     Dosage: TAKE ONE DAILY
     Dates: start: 20240509
  14. AMITRIPTYLINE HYDROCHLORIDE [Concomitant]
     Active Substance: AMITRIPTYLINE HYDROCHLORIDE
     Indication: Ill-defined disorder
     Dosage: TAKE ONE AT NIGHT WHEN REQUIRED, 1 DOSAGE FORMS DAILY
     Dates: start: 20240509
  15. ACETYLCYSTEINE [Concomitant]
     Active Substance: ACETYLCYSTEINE
     Indication: Ill-defined disorder
     Dosage: TAKE ONE DAILY
     Dates: start: 20240509
  16. ALBUTEROL [Concomitant]
     Active Substance: ALBUTEROL
     Indication: Ill-defined disorder
     Dosage: AS REQUIRED
     Dates: start: 20240509
  17. DOXYCYCLINE [Concomitant]
     Active Substance: DOXYCYCLINE
     Indication: Ill-defined disorder
     Dosage: TWO NOW THEN ONE DAILY, DURATION: 6 DAYS
     Dates: start: 20241030, end: 20241104
  18. METFORMIN [Concomitant]
     Active Substance: METFORMIN HYDROCHLORIDE
     Indication: Ill-defined disorder
     Dosage: TAKE TWO TABLETS TWICE DAILY, 4 DOSAGE FORMS DAILY
     Dates: start: 20240509
  19. MAGNESIUM ASPARTATE [Concomitant]
     Active Substance: MAGNESIUM ASPARTATE
     Indication: Ill-defined disorder
     Dosage: 1 SACHET TWICE DAILY FOR 5 DAYS, DURATION : 6 DAYS, 2 DOSAGE FORMS DAILY
     Dates: start: 20241008, end: 20241013
  20. FAMOTIDINE [Concomitant]
     Active Substance: FAMOTIDINE
     Indication: Ill-defined disorder
     Dosage: TAKE ONE DAILY
     Dates: start: 20240821
  21. NITROGLYCERIN [Concomitant]
     Active Substance: NITROGLYCERIN
     Indication: Ill-defined disorder
     Dosage: AS REQUIRED
     Dates: start: 20240509
  22. ISOSORBIDE MONONITRATE [Concomitant]
     Active Substance: ISOSORBIDE MONONITRATE
     Indication: Ill-defined disorder
     Dosage: TAKE TWO TWICE DAILY, TO USE INSTEAD OF THE 20...4 DOSAGE FORMS DAILY
     Dates: start: 20240509
  23. HYDROXOCOBALAMIN [Concomitant]
     Active Substance: HYDROXOCOBALAMIN
     Indication: Ill-defined disorder
     Dosage: EVERY 3MONTHS
     Route: 030
     Dates: start: 20240903
  24. RAMIPRIL [Concomitant]
     Active Substance: RAMIPRIL
     Indication: Ill-defined disorder
     Dosage: TAKE ONE DAILY, DURATION; 29 DAYS
     Dates: start: 20241108, end: 20241206
  25. FLUTICASONE FUROATE\SALMETEROL XINAFOATE [Concomitant]
     Active Substance: FLUTICASONE FUROATE\SALMETEROL XINAFOATE
     Indication: Ill-defined disorder
     Dosage: INHALE 2 DOSES TWICE DAILY, 4 DOSAGE FORMS DAILY
     Route: 055
     Dates: start: 20240509
  26. CALCIPOTRIENE [Concomitant]
     Active Substance: CALCIPOTRIENE
     Indication: Ill-defined disorder
     Dosage: APPLY ONCE DAILY
     Dates: start: 20240621
  27. RAMIPRIL [Suspect]
     Active Substance: RAMIPRIL
     Indication: Ill-defined disorder
     Route: 065
     Dates: start: 20241118

REACTIONS (1)
  - Oral mucosal blistering [Recovered/Resolved]

NARRATIVE: CASE EVENT DATE: 20241118
